FAERS Safety Report 12646505 (Version 2)
Quarter: 2016Q3

REPORT INFORMATION
  Report Type: Report from Study
  Country: US (occurrence: US)
  Receive Date: 20160812
  Receipt Date: 20160920
  Transmission Date: 20161109
  Serious: Yes (Death, Hospitalization, Other)
  Sender: FDA-Public Use
  Company Number: US-009507513-1608USA002308

PATIENT
  Age: 79 Year
  Sex: Female

DRUGS (1)
  1. KEYTRUDA [Suspect]
     Active Substance: PEMBROLIZUMAB
     Indication: BONE CANCER
     Dosage: UNK
     Route: 042

REACTIONS (6)
  - Pulmonary oedema [Unknown]
  - Respiratory failure [Unknown]
  - Respiratory disorder [Unknown]
  - Product use issue [Unknown]
  - Pleural effusion [Unknown]
  - Death [Fatal]

NARRATIVE: CASE EVENT DATE: 20160727
